FAERS Safety Report 20930220 (Version 3)
Quarter: 2022Q4

REPORT INFORMATION
  Report Type: Spontaneous
  Country: DE (occurrence: DE)
  Receive Date: 20220608
  Receipt Date: 20221210
  Transmission Date: 20230113
  Serious: Yes (Other)
  Sender: FDA-Public Use
  Company Number: DE-BRISTOL-MYERS SQUIBB COMPANY-2022-051705

PATIENT
  Age: 38 Year
  Sex: Male
  Weight: 79 kg

DRUGS (4)
  1. NIVOLUMAB [Suspect]
     Active Substance: NIVOLUMAB
     Indication: Malignant melanoma
     Dosage: DOSE : UNAVAILABLE;     FREQ : UNAVAILABLE
     Route: 042
     Dates: start: 202102
  2. NIVOLUMAB [Suspect]
     Active Substance: NIVOLUMAB
     Indication: Metastases to lymph nodes
     Dosage: COMBINATION THERAPY WITH OPDIVO (1 MG/KG) AND YERVOY (3 MG/KG)
     Route: 042
     Dates: end: 202105
  3. NIVOLUMAB [Suspect]
     Active Substance: NIVOLUMAB
     Route: 042
     Dates: start: 202108
  4. YERVOY [Suspect]
     Active Substance: IPILIMUMAB
     Indication: Metastases to lymph nodes
     Dosage: COMBINATION THERAPY WITH OPDIVO (1 MG/KG) AND YERVOY (3MG/KG)
     Route: 042
     Dates: end: 202105

REACTIONS (3)
  - Psoriatic arthropathy [Recovering/Resolving]
  - Latent tuberculosis [Recovering/Resolving]
  - Nail disorder [Recovering/Resolving]

NARRATIVE: CASE EVENT DATE: 20210827
